FAERS Safety Report 23409357 (Version 1)
Quarter: 2024Q1

REPORT INFORMATION
  Report Type: Spontaneous
  Country: US (occurrence: None)
  Receive Date: 20240116
  Receipt Date: 20240116
  Transmission Date: 20240410
  Serious: Yes (Hospitalization)
  Sender: FDA-Public Use
  Company Number: None

PATIENT
  Age: 58 Year
  Sex: Female
  Weight: 101.15 kg

DRUGS (2)
  1. TIRZEPATIDE [Suspect]
     Active Substance: TIRZEPATIDE
     Indication: Type 2 diabetes mellitus
     Dosage: FREQUENCY : WEEKLY;?
     Route: 058
     Dates: start: 20230919, end: 20231230
  2. MOUNJARO [Concomitant]
     Active Substance: TIRZEPATIDE

REACTIONS (5)
  - Nausea [None]
  - Vomiting [None]
  - Diarrhoea [None]
  - Dehydration [None]
  - Acute kidney injury [None]

NARRATIVE: CASE EVENT DATE: 20231230
